FAERS Safety Report 5980094-2 (Version None)
Quarter: 2008Q4

REPORT INFORMATION
  Report Type: 
  Country: None (occurrence: None)
  Receive Date: 20081205
  Receipt Date: 20081128
  Transmission Date: 20090506
  Serious: Yes (Other)
  Sender: FDA-Public Use
  Company Number: ES-AVENTIS-200816426EU

PATIENT
  Age: 85 Year
  Sex: Female

DRUGS (9)
  1. SEGURIL                            /00032601/ [Suspect]
     Indication: CARDIOMYOPATHY
     Route: 048
     Dates: start: 19971201
  2. ASPIRIN [Suspect]
     Indication: CARDIOMYOPATHY
     Route: 048
     Dates: start: 19971201
  3. FERRO GRADUMET [Suspect]
     Dosage: DOSE: UNK
     Route: 048
     Dates: start: 19971201
  4. NITRADISC [Suspect]
     Indication: CARDIOMYOPATHY
     Dates: start: 19971201
  5. STILNOX                            /00914901/ [Suspect]
     Indication: CARDIOMYOPATHY
     Dosage: DOSE: UNK
     Route: 048
     Dates: start: 19971201
  6. SEKISAN                            /00398402/ [Suspect]
     Route: 048
     Dates: start: 19980216
  7. ZANTAC [Suspect]
     Indication: CARDIOMYOPATHY
     Route: 048
     Dates: start: 19971201
  8. ZYLORIC [Suspect]
     Route: 048
     Dates: start: 19971201
  9. FLUIMUCIL                          /00082801/ [Suspect]
     Route: 048
     Dates: start: 19980216

REACTIONS (1)
  - STEVENS-JOHNSON SYNDROME [None]
